FAERS Safety Report 10127400 (Version 1)
Quarter: 2014Q2

REPORT INFORMATION
  Report Type: Spontaneous
  Country: GB (occurrence: GB)
  Receive Date: 20140428
  Receipt Date: 20140428
  Transmission Date: 20141212
  Serious: Yes (Disabling)
  Sender: FDA-Public Use
  Company Number: GB-MYLANLABS-2014S1008927

PATIENT
  Age: 62 Year
  Sex: Female

DRUGS (14)
  1. DOXYCYCLINE [Suspect]
     Indication: SINUSITIS
     Dosage: 200MG TO START AND THEN 100MG DAILY
     Dates: start: 20140228, end: 20140307
  2. ATENOLOL [Concomitant]
     Dosage: 50MG ONCE DAILY
  3. CLONIDINE [Concomitant]
     Indication: FLUSHING
     Dosage: 50MG THREE TIMES DAILY FOR MENOPAUSAL FLUSHING
  4. DILTIAZEM [Concomitant]
     Dosage: 120MG MODIFIED RELEASE ONCE DAILY
  5. DOXEPIN [Concomitant]
     Indication: PRURITUS
     Dosage: 5 % CREAM THREE TIMES DAILY PRN
  6. DUROGESIC DTRANS [Concomitant]
     Indication: BACK PAIN
     Dosage: 2 PATCHES EVERY 72 HOURS FOR CHRONIC BACK PAIN
  7. FEXOFENADINE [Concomitant]
  8. IBUPROFEN [Concomitant]
     Dosage: THREE TIMES DAILY PRN
  9. LOPERAMIDE [Concomitant]
     Dosage: AS REQUIRED
  10. LOSARTAN [Concomitant]
     Indication: HYPERTENSION
     Dosage: ONE DAILY
  11. OMEPRAZOLE [Concomitant]
  12. PARACETAMOL [Concomitant]
     Dosage: 1G FOURT IMES DAILY
  13. PROCHLORPERAZINE [Concomitant]
     Dosage: 1-2 THREE TIMES DAILY - WHEN REQUIRED
  14. SIMVASTATIN [Concomitant]
     Indication: HYPERCHOLESTEROLAEMIA

REACTIONS (1)
  - Tongue discolouration [Recovering/Resolving]
